FAERS Safety Report 12082321 (Version 1)
Quarter: 2016Q1

REPORT INFORMATION
  Report Type: Spontaneous
  Country: US (occurrence: US)
  Receive Date: 20160217
  Receipt Date: 20160217
  Transmission Date: 20160526
  Serious: Yes (Death)
  Sender: FDA-Public Use
  Company Number: US-APOTEX-2016AP006336

PATIENT
  Age: 60 Year
  Sex: Male

DRUGS (1)
  1. LABETALOL HYDROCHLORIDE INJECTION USP [Suspect]
     Active Substance: LABETALOL HYDROCHLORIDE
     Indication: HYPERTENSION
     Dosage: ONE DOSE
     Route: 065

REACTIONS (1)
  - Hypotension [Fatal]
